FAERS Safety Report 5387588-1 (Version None)
Quarter: 2007Q3

REPORT INFORMATION
  Report Type: 
  Country: None (occurrence: None)
  Receive Date: 20070711
  Receipt Date: 20070711
  Transmission Date: 20080115
  Serious: Yes (Hospitalization, Disabling)
  Sender: FDA-Public Use
  Company Number: None

PATIENT
  Age: 37 Year
  Sex: Female
  Weight: 61.2356 kg

DRUGS (1)
  1. DOXYCYCLINE [Suspect]
     Indication: RESPIRATORY TRACT INFECTION
     Dosage: 2X DAILY PO
     Route: 048
     Dates: start: 20070703, end: 20070707

REACTIONS (4)
  - DYSPHAGIA [None]
  - EROSIVE OESOPHAGITIS [None]
  - FOREIGN BODY TRAUMA [None]
  - OESOPHAGEAL ULCER [None]
